FAERS Safety Report 6023643-0 (Version None)
Quarter: 2008Q4

REPORT INFORMATION
  Report Type: 
  Country: None (occurrence: None)
  Receive Date: 20081222
  Receipt Date: 20080915
  Transmission Date: 20090506
  Serious: No
  Sender: FDA-Public Use
  Company Number: SPV1-2008-01979

PATIENT
  Age: 2 Year
  Sex: Male
  Weight: 13.6 kg

DRUGS (1)
  1. VYVANSE [Suspect]
     Dosage: 30 MG, ONE DOSE, ORAL
     Route: 048
     Dates: start: 20080915, end: 20080915

REACTIONS (3)
  - ACCIDENTAL EXPOSURE [None]
  - AGITATION [None]
  - HEART RATE INCREASED [None]
